FAERS Safety Report 5622696-9 (Version None)
Quarter: 2008Q1

REPORT INFORMATION
  Report Type: 
  Country: None (occurrence: None)
  Receive Date: 20080208
  Receipt Date: 20080208
  Transmission Date: 20080703
  Serious: No
  Sender: FDA-Public Use
  Company Number: None

PATIENT
  Age: 38 Year
  Sex: Female
  Weight: 65.7716 kg

DRUGS (4)
  1. NUVARING [Suspect]
  2. COUMADIN [Concomitant]
  3. ZICODIN [Concomitant]
  4. KEPPRA [Concomitant]

REACTIONS (8)
  - ACTIVITIES OF DAILY LIVING IMPAIRED [None]
  - CEREBROVASCULAR ACCIDENT [None]
  - EXPIRED DRUG ADMINISTERED [None]
  - FALL [None]
  - IMPAIRED DRIVING ABILITY [None]
  - MUSCULOSKELETAL PAIN [None]
  - SPEECH DISORDER [None]
  - THROMBOSIS [None]
